FAERS Safety Report 4839094-8 (Version None)
Quarter: 2005Q4

REPORT INFORMATION
  Report Type: 
  Country: None (occurrence: None)
  Receive Date: 20051129
  Receipt Date: 20041203
  Transmission Date: 20060501
  Serious: Yes (Other)
  Sender: FDA-Public Use
  Company Number: GB-GLAXOSMITHKLINE-B0359628A

PATIENT
  Sex: Female

DRUGS (3)
  1. SEROXAT [Suspect]
     Route: 065
     Dates: start: 19991021, end: 20030101
  2. TEMAZEPAM [Suspect]
     Route: 065
  3. DIAZEPAM [Suspect]
     Route: 065

REACTIONS (4)
  - AGGRESSION [None]
  - ILL-DEFINED DISORDER [None]
  - OVERDOSE [None]
  - SUICIDAL IDEATION [None]
